FAERS Safety Report 8430643 (Version 2)
Quarter: 2013Q3

REPORT INFORMATION
  Report Type: Report from Study
  Country: AR (occurrence: AR)
  Receive Date: 20120228
  Receipt Date: 20130711
  Transmission Date: 20140515
  Serious: Yes (Death, Hospitalization)
  Sender: FDA-Public Use
  Company Number: AR-ROCHE-1043230

PATIENT
  Age: 81 Year
  Sex: Female

DRUGS (2)
  1. RANIBIZUMAB [Suspect]
     Indication: CATARACT
     Route: 050
     Dates: start: 201111
  2. RANIBIZUMAB [Suspect]
     Route: 050
     Dates: start: 2012

REACTIONS (4)
  - Cardiac arrest [Fatal]
  - Diabetes mellitus [Unknown]
  - Feeling abnormal [Unknown]
  - Asthenopia [Recovering/Resolving]
